FAERS Safety Report 11318463 (Version 1)
Quarter: 2015Q3

REPORT INFORMATION
  Report Type: Spontaneous
  Country: NL (occurrence: NL)
  Receive Date: 20150729
  Receipt Date: 20150729
  Transmission Date: 20151125
  Serious: Yes (Other)
  Sender: FDA-Public Use
  Company Number: PHHY2015NL086482

PATIENT
  Age: 45 Year
  Sex: Female

DRUGS (5)
  1. OMEPRAZOLE. [Suspect]
     Active Substance: OMEPRAZOLE
     Indication: ABDOMINAL SYMPTOM
     Dosage: 20 MG, QD
     Route: 065
  2. AZATHIOPRINE. [Interacting]
     Active Substance: AZATHIOPRINE
     Indication: DYSHIDROTIC ECZEMA
     Dosage: 50 MG, QD
     Route: 065
  3. AZATHIOPRINE. [Interacting]
     Active Substance: AZATHIOPRINE
     Dosage: 100 MG, QD
     Route: 065
  4. PREDNISONE. [Concomitant]
     Active Substance: PREDNISONE
     Indication: DYSHIDROTIC ECZEMA
     Dosage: 30 MG, QD
     Route: 065
  5. AZATHIOPRINE. [Interacting]
     Active Substance: AZATHIOPRINE
     Dosage: 150 MG, QD
     Route: 065

REACTIONS (2)
  - Hepatic enzyme increased [Recovered/Resolved]
  - Drug interaction [Unknown]
